FAERS Safety Report 10166317 (Version 2)
Quarter: 2014Q2

REPORT INFORMATION
  Report Type: Spontaneous
  Country: US (occurrence: US)
  Receive Date: 20140512
  Receipt Date: 20140603
  Transmission Date: 20141212
  Serious: No
  Sender: FDA-Public Use
  Company Number: US-009507513-1405USA000835

PATIENT
  Age: 32 Year
  Sex: Female
  Weight: 56.24 kg

DRUGS (1)
  1. IMPLANON [Suspect]
     Indication: CONTRACEPTION
     Dosage: UNK
     Route: 059
     Dates: start: 20120707

REACTIONS (2)
  - Device difficult to use [Unknown]
  - Medical device complication [Unknown]
